FAERS Safety Report 7215936-6 (Version None)
Quarter: 2011Q1

REPORT INFORMATION
  Report Type: 
  Country: None (occurrence: None)
  Receive Date: 20110105
  Receipt Date: 20110105
  Transmission Date: 20110831
  Serious: Yes (Hospitalization)
  Sender: FDA-Public Use
  Company Number: None

PATIENT
  Sex: Male
  Weight: 75 kg

DRUGS (7)
  1. TEMODAR [Suspect]
     Indication: GLIOBLASTOMA MULTIFORME
     Dosage: 140MG (75MG/M2) DIALY PO
     Route: 048
     Dates: start: 20100405, end: 20100516
  2. PACLITAXEL [Suspect]
     Dosage: 78MG (40MG/M2) WEEKLY X6 IV
     Route: 042
     Dates: start: 20100405
  3. PACLITAXEL [Suspect]
     Dosage: 78MG (40MG/M2) WEEKLY X6 IV
     Route: 042
     Dates: start: 20100419
  4. PACLITAXEL [Suspect]
     Dosage: 78MG (40MG/M2) WEEKLY X6 IV
     Route: 042
     Dates: start: 20100426
  5. PACLITAXEL [Suspect]
     Dosage: 78MG (40MG/M2) WEEKLY X6 IV
     Route: 042
     Dates: start: 20100412
  6. PACLITAXEL [Suspect]
     Dosage: 78MG (40MG/M2) WEEKLY X6 IV
     Route: 042
     Dates: start: 20100202
  7. PACLITAXEL [Suspect]
     Dosage: 78MG (40MG/M2) WEEKLY X6 IV
     Route: 042
     Dates: start: 20100510

REACTIONS (2)
  - ASTHENIA [None]
  - FALL [None]
